FAERS Safety Report 6987187-1 (Version None)
Quarter: 2010Q3

REPORT INFORMATION
  Report Type: 
  Country: None (occurrence: None)
  Receive Date: 20100916
  Receipt Date: 20100908
  Transmission Date: 20110219
  Serious: Yes (Disabling, Other)
  Sender: FDA-Public Use
  Company Number: US-PFIZER INC-2010113523

PATIENT
  Sex: Male
  Weight: 136.5 kg

DRUGS (5)
  1. LIPITOR [Suspect]
     Indication: BLOOD CHOLESTEROL INCREASED
     Dosage: UNK
     Route: 048
     Dates: start: 19990101, end: 19990101
  2. TOPROL-XL [Concomitant]
     Indication: HYPERTENSION
     Dosage: UNK
  3. CLONIDINE [Concomitant]
     Indication: HYPERTENSION
     Dosage: UNK
  4. PROCARDIA [Concomitant]
     Indication: HYPERTENSION
     Dosage: UNK
  5. BUMEX [Concomitant]
     Indication: HYPERTENSION
     Dosage: UNK

REACTIONS (7)
  - AORTIC VALVE REPLACEMENT [None]
  - BLOOD CHOLESTEROL INCREASED [None]
  - BODY HEIGHT DECREASED [None]
  - CARDIAC DISORDER [None]
  - MUSCULAR WEAKNESS [None]
  - MYALGIA [None]
  - VASCULAR GRAFT [None]
